FAERS Safety Report 11325115 (Version 3)
Quarter: 2016Q2

REPORT INFORMATION
  Report Type: Report from Study
  Country: US (occurrence: US)
  Receive Date: 20150730
  Receipt Date: 20160516
  Transmission Date: 20160815
  Serious: No
  Sender: FDA-Public Use
  Company Number: PHEH2014US014411

PATIENT
  Age: 2 Year
  Sex: Male

DRUGS (6)
  1. TRILEPTAL [Concomitant]
     Active Substance: OXCARBAZEPINE
     Indication: PRODUCT USED FOR UNKNOWN INDICATION
     Dosage: UNK
     Route: 065
  2. AFINITOR [Suspect]
     Active Substance: EVEROLIMUS
     Indication: GANGLIOGLIOMA
     Dosage: 2 MG, QD
     Route: 048
     Dates: start: 20140714
  3. TAURINE [Concomitant]
     Active Substance: TAURINE
     Indication: PRODUCT USED FOR UNKNOWN INDICATION
     Dosage: UNK
     Route: 065
  4. AFINITOR [Suspect]
     Active Substance: EVEROLIMUS
     Dosage: 5 MG, QD
     Route: 048
  5. DIASTAT [Concomitant]
     Active Substance: DIAZEPAM
     Indication: PRODUCT USED FOR UNKNOWN INDICATION
     Dosage: UNK UNK, PRN
     Route: 065
  6. AFINITOR [Suspect]
     Active Substance: EVEROLIMUS
     Dosage: 3 MG
     Route: 048
     Dates: start: 20150524

REACTIONS (10)
  - Vomiting [Recovered/Resolved]
  - Pigmentation disorder [Not Recovered/Not Resolved]
  - Pyrexia [Recovered/Resolved]
  - Hand-foot-and-mouth disease [Recovered/Resolved]
  - Croup infectious [Recovered/Resolved]
  - Malaise [Recovered/Resolved]
  - Somnolence [Not Recovered/Not Resolved]
  - Memory impairment [Recovered/Resolved]
  - Wrong technique in product usage process [Unknown]
  - Stomatitis [Recovered/Resolved]

NARRATIVE: CASE EVENT DATE: 20140715
